FAERS Safety Report 7134661-3 (Version None)
Quarter: 2010Q4

REPORT INFORMATION
  Report Type: 
  Country: None (occurrence: None)
  Receive Date: 20101203
  Receipt Date: 20101120
  Transmission Date: 20110411
  Serious: No
  Sender: FDA-Public Use
  Company Number: US-ELI_LILLY_AND_COMPANY-US201010003991

PATIENT
  Sex: Female

DRUGS (6)
  1. CYMBALTA [Suspect]
     Indication: MAJOR DEPRESSION
     Dosage: 120 MG, DAILY (1/D)
     Dates: end: 20101010
  2. DIOVAN HCT [Concomitant]
     Indication: HYPERTENSION
  3. CRESTOR [Concomitant]
     Indication: HYPERLIPIDAEMIA
  4. RESTORIL [Concomitant]
     Dosage: 15 MG, EACH EVENING
  5. RESTORIL [Concomitant]
     Dosage: 30 MG, EACH EVENING
  6. KLONOPIN [Concomitant]
     Dosage: 0.5 MG, 2/D

REACTIONS (24)
  - ANXIETY [None]
  - CHROMATURIA [None]
  - CONSTIPATION [None]
  - CYSTITIS [None]
  - DEPRESSION [None]
  - DIABETES MELLITUS [None]
  - DIARRHOEA [None]
  - DIZZINESS [None]
  - DRUG WITHDRAWAL SYNDROME [None]
  - EMOTIONAL DISORDER [None]
  - GASTROINTESTINAL DISORDER [None]
  - HYPERHIDROSIS [None]
  - HYPERTENSION [None]
  - LIPASE INCREASED [None]
  - LIVER DISORDER [None]
  - MUSCLE SPASMS [None]
  - MUSCLE TWITCHING [None]
  - NAUSEA [None]
  - OEDEMA [None]
  - PAIN IN EXTREMITY [None]
  - PRURITUS [None]
  - URINE ODOUR ABNORMAL [None]
  - VOMITING [None]
  - WEIGHT INCREASED [None]
